FAERS Safety Report 8200525-7 (Version None)
Quarter: 2012Q1

REPORT INFORMATION
  Report Type: 
  Country: None (occurrence: None)
  Receive Date: 20120301
  Receipt Date: 20120221
  Transmission Date: 20120608
  Serious: Yes (Other)
  Sender: FDA-Public Use
  Company Number: 2012031282

PATIENT
  Age: 51 Year
  Sex: Female
  Weight: 83.9154 kg

DRUGS (4)
  1. HIZENTRA [Suspect]
     Indication: IMMUNODEFICIENCY COMMON VARIABLE
     Dosage: SEE IMAGE
     Route: 058
     Dates: start: 20120220, end: 20120220
  2. HIZENTRA [Suspect]
  3. ACETAMINOPHEN [Concomitant]
  4. VALTREX [Concomitant]

REACTIONS (4)
  - URINARY TRACT INFECTION [None]
  - PAIN [None]
  - TENDERNESS [None]
  - CHROMATURIA [None]
